FAERS Safety Report 18044753 (Version 1)
Quarter: 2020Q3

REPORT INFORMATION
  Report Type: Spontaneous
  Country: CN (occurrence: CN)
  Receive Date: 20200720
  Receipt Date: 20200720
  Transmission Date: 20201103
  Serious: Yes (Other)
  Sender: FDA-Public Use
  Company Number: CN-PFIZER INC-2020272005

PATIENT
  Age: 16 Month
  Sex: Female
  Weight: 10 kg

DRUGS (3)
  1. SOLU?MEDROL [Suspect]
     Active Substance: METHYLPREDNISOLONE SODIUM SUCCINATE
     Indication: ASTHMA
     Dosage: 20 MG, 1X/DAY
     Route: 041
     Dates: start: 20200711, end: 20200711
  2. SOLU?MEDROL [Suspect]
     Active Substance: METHYLPREDNISOLONE SODIUM SUCCINATE
     Indication: PNEUMONIA
  3. SODIUM CHLORIDE 0.9% [Concomitant]
     Active Substance: SODIUM CHLORIDE
     Indication: VEHICLE SOLUTION USE
     Dosage: 70 ML, 1X/DAY
     Route: 041
     Dates: start: 20200711, end: 20200711

REACTIONS (4)
  - Rash maculo-papular [Recovering/Resolving]
  - Hyperaemia [Recovering/Resolving]
  - Restlessness [Recovering/Resolving]
  - Infant irritability [Recovering/Resolving]

NARRATIVE: CASE EVENT DATE: 20200711
